FAERS Safety Report 9997266 (Version 1)
Quarter: 2014Q1

REPORT INFORMATION
  Report Type: Spontaneous
  Country: US (occurrence: US)
  Receive Date: 20140311
  Receipt Date: 20140311
  Transmission Date: 20141002
  Serious: No
  Sender: FDA-Public Use
  Company Number: US-GLAXOSMITHKLINE-A1027097A

PATIENT
  Age: 53 Year
  Sex: Female

DRUGS (3)
  1. NICORETTE OTC, UNSPECIFIED [Suspect]
     Indication: EX-TOBACCO USER
  2. NICORETTE MINIS MINT [Suspect]
     Indication: EX-TOBACCO USER
  3. NICORETTE NICOTINE POLACRILEX LOZENGE [Suspect]
     Indication: EX-TOBACCO USER

REACTIONS (3)
  - Hiccups [Recovered/Resolved]
  - Dyspepsia [Recovered/Resolved]
  - Salivary hypersecretion [Recovered/Resolved]
